FAERS Safety Report 22291474 (Version 3)
Quarter: 2023Q2

REPORT INFORMATION
  Report Type: Spontaneous
  Country: IT (occurrence: IT)
  Receive Date: 20230506
  Receipt Date: 20230626
  Transmission Date: 20230722
  Serious: Yes (Life-Threatening, Hospitalization)
  Sender: FDA-Public Use
  Company Number: IT-MINISAL02-916531

PATIENT
  Age: 53 Year
  Sex: Male
  Weight: 64 kg

DRUGS (7)
  1. LENALIDOMIDE [Suspect]
     Active Substance: LENALIDOMIDE
     Indication: Primary amyloidosis
     Dosage: 5 MILLIGRAM DAILY;
     Route: 065
     Dates: start: 20230214, end: 20230215
  2. DEXAMETHASONE [Concomitant]
     Active Substance: DEXAMETHASONE
     Indication: Primary amyloidosis
     Dosage: 10 MILLIGRAM DAILY;
     Route: 048
     Dates: start: 20230214, end: 20230215
  3. DARATUMUMAB [Concomitant]
     Active Substance: DARATUMUMAB
     Indication: Primary amyloidosis
     Dosage: 1800 MG SC 1 DOSE
     Route: 058
     Dates: start: 20230214, end: 20230214
  4. Cardioaspririna [Concomitant]
     Indication: Product used for unknown indication
     Route: 048
     Dates: start: 20230214, end: 20230224
  5. ACYCLOVIR [Concomitant]
     Active Substance: ACYCLOVIR
     Indication: Product used for unknown indication
     Route: 048
     Dates: start: 20230214, end: 20230215
  6. OMEPRAZOLE [Concomitant]
     Active Substance: OMEPRAZOLE
     Indication: Product used for unknown indication
     Route: 048
     Dates: start: 20230214, end: 20230215
  7. PREDNISONE [Concomitant]
     Active Substance: PREDNISONE
     Indication: Product used for unknown indication

REACTIONS (4)
  - Left ventricular failure [Recovered/Resolved]
  - Troponin increased [Recovered/Resolved]
  - Electrocardiogram ST segment depression [Recovered/Resolved]
  - Angina pectoris [Recovered/Resolved]

NARRATIVE: CASE EVENT DATE: 20230215
